FAERS Safety Report 5463411-1 (Version None)
Quarter: 2007Q3

REPORT INFORMATION
  Report Type: 
  Country: None (occurrence: None)
  Receive Date: 20070920
  Receipt Date: 20070912
  Transmission Date: 20080115
  Serious: Yes (Hospitalization, Other)
  Sender: FDA-Public Use
  Company Number: JP-BRISTOL-MYERS SQUIBB COMPANY-13848346

PATIENT
  Age: 28 Year
  Sex: Female

DRUGS (2)
  1. ARIPIPRAZOLE [Suspect]
     Indication: SCHIZOPHRENIA
     Dosage: 3MG/D - 10MAY07-22MAY07;  6MG/D - 23MAY07-19JUN07; 12MG/D - 20JUN07-JUL07; 6MG/D - 18JUL07-01AUG07
     Route: 048
     Dates: start: 20070620, end: 20070701
  2. RISPERIDONE [Concomitant]
     Indication: SCHIZOPHRENIA
     Route: 048

REACTIONS (2)
  - DRUG EXPOSURE DURING PREGNANCY [None]
  - ECTOPIC PREGNANCY [None]
